FAERS Safety Report 9842713 (Version 3)
Quarter: 2014Q1

REPORT INFORMATION
  Report Type: Spontaneous
  Country: US (occurrence: US)
  Receive Date: 20140124
  Receipt Date: 20140310
  Transmission Date: 20141002
  Serious: Yes (Other)
  Sender: FDA-Public Use
  Company Number: US-PFIZER INC-2014022131

PATIENT
  Age: 35 Year
  Sex: Female
  Weight: 106 kg

DRUGS (3)
  1. LYRICA [Suspect]
     Indication: FIBROMYALGIA
     Dosage: 75 MG, DAILY AT NIGHT
     Dates: start: 201312, end: 201401
  2. LYRICA [Suspect]
     Dosage: 75 MG, 2X/DAY
     Dates: start: 201401
  3. LYRICA [Suspect]
     Dosage: 75 MG, DAILY

REACTIONS (2)
  - Activities of daily living impaired [Unknown]
  - Somnolence [Unknown]
